FAERS Safety Report 5924726 (Version 34)
Quarter: 2013Q1

REPORT INFORMATION
  Report Type: Spontaneous
  Country: US (occurrence: US)
  Receive Date: 20051117
  Receipt Date: 20130214
  Transmission Date: 20140127
  Serious: Yes (Hospitalization, Other)
  Sender: FDA-Public Use
  Company Number: PHEH2005US12254

PATIENT
  Age: 66 Year
  Sex: Female

DRUGS (37)
  1. DIOVAN [Concomitant]
  2. ACIDOPHILUS ^ZYMA^ [Concomitant]
  3. PYRIDOXINE HYDROCHLORIDE [Concomitant]
  4. TERBINAFINE [Concomitant]
  5. ZOLPIDEM [Concomitant]
  6. BENADRYL ALLERGY [Concomitant]
  7. AREDIA [Suspect]
     Indication: BREAST CANCER
     Dosage: 90 MG, QMO
     Dates: start: 200212, end: 20040610
  8. AREDIA [Suspect]
     Indication: OSTEOPOROSIS
  9. ZOMETA [Suspect]
     Indication: BREAST CANCER
     Dosage: 4 MG, QMO
     Dates: start: 20020507, end: 20021114
  10. FEMARA [Concomitant]
     Indication: BREAST CANCER
     Dates: start: 20040319
  11. EFFEXOR [Concomitant]
     Indication: HOT FLUSH
     Dosage: 37.5 MG, QD
  12. SYNTHROID [Concomitant]
  13. CELEBREX [Concomitant]
  14. CYTOMEL [Concomitant]
     Dosage: 2.5 MG, QD
  15. FORTEO [Concomitant]
     Dates: start: 2006
  16. ACTIFED [Concomitant]
  17. AMBIEN [Concomitant]
  18. FISH OIL [Concomitant]
  19. PRILOSEC [Concomitant]
  20. GAVISCON                                /GFR/ [Concomitant]
  21. GLUCONATE SODIUM [Concomitant]
  22. LYSINE ASPIRIN [Concomitant]
  23. COUMADIN ^BOOTS^ [Concomitant]
  24. LOVENOX [Concomitant]
  25. REGLAN                                  /USA/ [Concomitant]
  26. TAMOXIFEN [Concomitant]
  27. ENOXAPARIN [Concomitant]
  28. COMPAZINE [Concomitant]
  29. CIMETIDINE [Concomitant]
  30. ACETAMINOPHEN [Concomitant]
  31. ONDANSETRON [Concomitant]
  32. PACLITAXEL [Concomitant]
  33. RESTORIL [Concomitant]
     Dates: start: 20030226
  34. PROVERA [Concomitant]
  35. ESTRADERM [Concomitant]
  36. MACROBID [Concomitant]
  37. OMEPRAZOLE [Concomitant]

REACTIONS (90)
  - Osteonecrosis of jaw [Not Recovered/Not Resolved]
  - Bone disorder [Not Recovered/Not Resolved]
  - Gingival erythema [Unknown]
  - Gingival swelling [Unknown]
  - Deformity [Unknown]
  - Anxiety [Unknown]
  - General physical health deterioration [Unknown]
  - Emotional distress [Unknown]
  - Decreased interest [Unknown]
  - Life expectancy shortened [Unknown]
  - Hypophagia [Unknown]
  - Soft tissue infection [Unknown]
  - Periodontitis [Unknown]
  - Gingival ulceration [Unknown]
  - Angioedema [Recovered/Resolved]
  - Oedema mouth [Unknown]
  - Deep vein thrombosis [Unknown]
  - Swollen tongue [Recovered/Resolved]
  - Bundle branch block left [Unknown]
  - Salivary gland enlargement [Unknown]
  - Swelling [Unknown]
  - Cerebral ischaemia [Unknown]
  - Onychomycosis [Unknown]
  - Polyp [Unknown]
  - Gastrooesophageal reflux disease [Unknown]
  - Tooth abscess [Unknown]
  - Oral pain [Recovered/Resolved]
  - Biopsy tongue abnormal [Unknown]
  - Hypertension [Unknown]
  - Micturition urgency [Unknown]
  - Amnesia [Unknown]
  - Mononucleosis syndrome [Unknown]
  - Arthritis [Unknown]
  - Leukocytosis [Unknown]
  - Hot flush [Unknown]
  - Vaginal haemorrhage [Unknown]
  - Neoplasm malignant [Unknown]
  - Postmenopausal haemorrhage [Unknown]
  - Uterine enlargement [Unknown]
  - Uterine leiomyoma [Unknown]
  - Osteopenia [Unknown]
  - Uterine cervical squamous metaplasia [Unknown]
  - Uterine polyp [Unknown]
  - Adnexa uteri mass [Unknown]
  - Hyperlipidaemia [Unknown]
  - Urinary tract infection [Unknown]
  - Atrophic vulvovaginitis [Unknown]
  - Tendon injury [Unknown]
  - Lumbar spinal stenosis [Unknown]
  - Intervertebral disc protrusion [Unknown]
  - Haemorrhoids [Unknown]
  - Dermatitis atopic [Unknown]
  - Eczema [Unknown]
  - Sciatica [Unknown]
  - Coital bleeding [Unknown]
  - Foot deformity [Unknown]
  - Pain in extremity [Unknown]
  - Foreign body in eye [Unknown]
  - Local swelling [Unknown]
  - Folliculitis [Unknown]
  - Skin papilloma [Unknown]
  - Spondylolisthesis [Unknown]
  - Muscle injury [Unknown]
  - Fall [Unknown]
  - Joint injury [Unknown]
  - Corneal abrasion [Recovering/Resolving]
  - Ocular hyperaemia [Recovering/Resolving]
  - Dental caries [Unknown]
  - Cataract [Unknown]
  - Conjunctivitis viral [Recovering/Resolving]
  - Lacrimation increased [Unknown]
  - Nasopharyngitis [Unknown]
  - Lactose intolerance [Unknown]
  - Peptic ulcer [Unknown]
  - Vulvovaginal dryness [Unknown]
  - Large intestine polyp [Unknown]
  - Soft tissue disorder [Unknown]
  - Pulmonary mass [Unknown]
  - Spinal osteoarthritis [Unknown]
  - Primary sequestrum [Unknown]
  - Bacterial disease carrier [Unknown]
  - Osteomyelitis [Unknown]
  - Abscess jaw [Unknown]
  - Diverticulum intestinal [Unknown]
  - Urinary incontinence [Unknown]
  - Bronchitis [Unknown]
  - Conjunctivitis bacterial [Unknown]
  - Phlebitis deep [Unknown]
  - Thrombophlebitis [Unknown]
  - Exostosis [Unknown]
